FAERS Safety Report 7961471-7 (Version None)
Quarter: 2011Q4

REPORT INFORMATION
  Report Type: 
  Country: None (occurrence: None)
  Receive Date: 20111202
  Receipt Date: 20110815
  Transmission Date: 20120403
  Serious: Yes (Other)
  Sender: FDA-Public Use
  Company Number: 2011MA012251

PATIENT
  Sex: Male

DRUGS (7)
  1. BISOPROLOL TEVA (NO PREF. NAME) [Suspect]
     Indication: PRODUCT USED FOR UNKNOWN INDICATION
     Dosage: 10 MG;QD;ORAL
     Route: 048
     Dates: start: 20101101
  2. CLOPIDOGREL [Concomitant]
  3. ACETYLSALICYLIC ACID M+A PHARMA [Concomitant]
  4. DIGOXIN [Suspect]
     Dosage: .250 MCG;QD;ORAL
     Route: 048
  5. FUROSEMIDE [Concomitant]
  6. RANITIDINE ACCORD HEALTHCARE [Concomitant]
  7. IRBESARTAN SANOFI PHARMA [Concomitant]

REACTIONS (1)
  - DYSPNOEA [None]
